FAERS Safety Report 6146374-5 (Version None)
Quarter: 2009Q2

REPORT INFORMATION
  Report Type: 
  Country: None (occurrence: None)
  Receive Date: 20090403
  Receipt Date: 20090326
  Transmission Date: 20091009
  Serious: Yes (Other)
  Sender: FDA-Public Use
  Company Number: TAP2009Q00321

PATIENT
  Age: 69 Year
  Sex: Female
  Weight: 96.81 kg

DRUGS (9)
  1. ULORIC [Suspect]
     Indication: GOUT
     Dosage: 40 MG (40 MG, 1 IN 1 D), PER ORAL; 80 MG (80 MG, 1 IN 1 D), PER ORAL
     Route: 048
     Dates: start: 20090312, end: 20090319
  2. ULORIC [Suspect]
     Indication: GOUT
     Dosage: 40 MG (40 MG, 1 IN 1 D), PER ORAL; 80 MG (80 MG, 1 IN 1 D), PER ORAL
     Route: 048
     Dates: start: 20090319, end: 20090326
  3. COLCHICINE (COLCHICINE) [Concomitant]
  4. DIOVAN [Concomitant]
  5. GLIPIZIDE [Concomitant]
  6. PROCARDIA [Concomitant]
  7. PRILOSEC [Concomitant]
  8. LASIX [Concomitant]
  9. PROCRIT [Concomitant]

REACTIONS (4)
  - CONDITION AGGRAVATED [None]
  - HYPERSENSITIVITY [None]
  - RENAL FAILURE CHRONIC [None]
  - TUBULOINTERSTITIAL NEPHRITIS [None]
